FAERS Safety Report 25172362 (Version 1)
Quarter: 2025Q2

REPORT INFORMATION
  Report Type: Spontaneous
  Country: US (occurrence: US)
  Receive Date: 20250408
  Receipt Date: 20250408
  Transmission Date: 20250716
  Serious: Yes (Other)
  Sender: MYLAN
  Company Number: US-MYLANLABS-2025M1029584

PATIENT
  Age: 72 Year
  Sex: Female

DRUGS (4)
  1. VORICONAZOLE [Suspect]
     Active Substance: VORICONAZOLE
     Indication: Keratitis fungal
  2. POSACONAZOLE [Suspect]
     Active Substance: POSACONAZOLE
     Indication: Keratitis fungal
     Dosage: 300 MILLIGRAM, BID
  3. NATAMYCIN [Suspect]
     Active Substance: NATAMYCIN
     Indication: Keratitis fungal
  4. AMPHOTERICIN B [Suspect]
     Active Substance: AMPHOTERICIN B
     Indication: Keratitis fungal

REACTIONS (2)
  - Drug ineffective [Unknown]
  - Hypertensive urgency [Unknown]
